FAERS Safety Report 6286069-0 (Version None)
Quarter: 2009Q3

REPORT INFORMATION
  Report Type: 
  Country: None (occurrence: None)
  Receive Date: 20090728
  Receipt Date: 20090702
  Transmission Date: 20100115
  Serious: No
  Sender: FDA-Public Use
  Company Number: US-TYCO HEALTHCARE/MALLINCKRODT-T200901328

PATIENT
  Sex: Male

DRUGS (14)
  1. CONRAY [Suspect]
     Indication: NUCLEAR MAGNETIC RESONANCE IMAGING
     Dosage: 13 ML, SINGLE
     Dates: start: 20050906, end: 20050906
  2. CONRAY [Suspect]
     Dosage: UNK
     Dates: start: 20050912, end: 20050912
  3. SODIUM CHLORIDE [Suspect]
     Dosage: UNK
     Dates: start: 20050906, end: 20050906
  4. GADOLINIUM [Suspect]
  5. PANTOPAQUE [Suspect]
  6. ANTIBIOTICS [Concomitant]
  7. FLOMAX [Concomitant]
  8. XANAX [Concomitant]
     Dosage: 1 MG, TID
  9. LISINOPRIL [Concomitant]
     Dosage: 20 MG, UNK
  10. DURAGESIC-100 [Concomitant]
     Dosage: 100 MG, QD
  11. PERCOCET [Concomitant]
     Dosage: UP TO 5/DAY
  12. NASACORT [Concomitant]
  13. CYMBALTA [Concomitant]
     Dosage: 60 MG, QD
  14. SINGULAIR [Concomitant]
     Dosage: 10 MG, UNK

REACTIONS (4)
  - HYDRONEPHROSIS [None]
  - JOINT SWELLING [None]
  - PAIN [None]
  - SKIN DISCOLOURATION [None]
